FAERS Safety Report 14826209 (Version 2)
Quarter: 2018Q2

REPORT INFORMATION
  Report Type: Report from Study
  Country: US (occurrence: US)
  Receive Date: 20180430
  Receipt Date: 20180503
  Transmission Date: 20180711
  Serious: Yes (Hospitalization, Other)
  Sender: FDA-Public Use
  Company Number: US-GILEAD-2018-0335817

PATIENT
  Age: 75 Year
  Sex: Female

DRUGS (23)
  1. AMBRISENTAN [Suspect]
     Active Substance: AMBRISENTAN
     Indication: PULMONARY ARTERIAL HYPERTENSION
     Dosage: 5 MG, QD
     Route: 065
  2. IPRATROPIUM [Concomitant]
     Active Substance: IPRATROPIUM
  3. KLONOPIN [Concomitant]
     Active Substance: CLONAZEPAM
  4. KLOR-CON [Concomitant]
     Active Substance: POTASSIUM CHLORIDE
  5. LASIX [Concomitant]
     Active Substance: FUROSEMIDE
  6. DIGOXIN. [Concomitant]
     Active Substance: DIGOXIN
  7. GABAPENTIN. [Concomitant]
     Active Substance: GABAPENTIN
  8. FLAXSEED OIL                       /01649403/ [Concomitant]
  9. PRIMIDONE. [Concomitant]
     Active Substance: PRIMIDONE
  10. VITAMIN C [Concomitant]
     Active Substance: ASCORBIC ACID
  11. ELIQUIS [Concomitant]
     Active Substance: APIXABAN
  12. SPIRIVA [Concomitant]
     Active Substance: TIOTROPIUM BROMIDE MONOHYDRATE
  13. SYMBICORT [Concomitant]
     Active Substance: BUDESONIDE\FORMOTEROL FUMARATE DIHYDRATE
  14. ZYRTEC [Concomitant]
     Active Substance: CETIRIZINE HYDROCHLORIDE
  15. OMEPRAZOLE. [Concomitant]
     Active Substance: OMEPRAZOLE
  16. TOPROL XL [Concomitant]
     Active Substance: METOPROLOL SUCCINATE
  17. ALLOPURINOL. [Concomitant]
     Active Substance: ALLOPURINOL
  18. AMBIEN [Concomitant]
     Active Substance: ZOLPIDEM TARTRATE
  19. VITAMIN E                          /00110501/ [Concomitant]
     Active Substance: TOCOPHEROL
  20. CURCUMIN [Concomitant]
     Active Substance: CURCUMIN
  21. HORSE CHESTNUT EXTRACT [Concomitant]
     Active Substance: HORSE CHESTNUT
  22. MIRALAX [Concomitant]
     Active Substance: POLYETHYLENE GLYCOL 3350
  23. VENTOLIN [Concomitant]
     Active Substance: ALBUTEROL SULFATE

REACTIONS (2)
  - Pulmonary arterial hypertension [Unknown]
  - Cardiac disorder [Unknown]
